FAERS Safety Report 4323303-8 (Version None)
Quarter: 2004Q1

REPORT INFORMATION
  Report Type: 
  Country: None (occurrence: None)
  Receive Date: 20040323
  Receipt Date: 20031126
  Transmission Date: 20041129
  Serious: No
  Sender: FDA-Public Use
  Company Number: M03-341-172

PATIENT
  Age: 68 Year
  Sex: Male
  Weight: 77 kg

DRUGS (1)
  1. VELCADE [Suspect]
     Indication: MULTIPLE MYELOMA
     Dosage: 2.4 MG: INTRAVENOUS BOLUS
     Route: 040
     Dates: start: 20031103, end: 20031110

REACTIONS (3)
  - ANOREXIA [None]
  - BLOOD CREATININE INCREASED [None]
  - FATIGUE [None]
